FAERS Safety Report 21509778 (Version 1)
Quarter: 2022Q4

REPORT INFORMATION
  Report Type: Report from Study
  Country: DE (occurrence: DE)
  Receive Date: 20221026
  Receipt Date: 20221026
  Transmission Date: 20230112
  Serious: Yes (Other)
  Sender: FDA-Public Use
  Company Number: DE-JAZZ-2022-DE-003951

PATIENT
  Age: 64 Year

DRUGS (7)
  1. DEFITELIO [Suspect]
     Active Substance: DEFIBROTIDE SODIUM
     Indication: Prophylaxis
     Dosage: UNK
     Dates: start: 20220206
  2. HEPARIN SODIUM [Concomitant]
     Active Substance: HEPARIN SODIUM
     Indication: Product used for unknown indication
     Dosage: UNK
  3. PROSTAGLANDIN E1 [Concomitant]
     Active Substance: ALPROSTADIL
     Indication: Product used for unknown indication
     Dosage: UNK
  4. URSODIOL [Concomitant]
     Active Substance: URSODIOL
     Indication: Product used for unknown indication
     Dosage: UNK
  5. ACETYLCYSTEINE [Concomitant]
     Active Substance: ACETYLCYSTEINE
     Indication: Product used for unknown indication
     Dosage: UNK
  6. UNSPECIFIED INGREDIENT [Concomitant]
     Active Substance: UNSPECIFIED INGREDIENT
     Indication: Product used for unknown indication
     Dosage: UNK
  7. METHYLPREDNISOLONE [Concomitant]
     Active Substance: METHYLPREDNISOLONE
     Indication: Product used for unknown indication
     Dosage: UNK

REACTIONS (2)
  - Venoocclusive disease [Unknown]
  - Off label use [Unknown]

NARRATIVE: CASE EVENT DATE: 20220201
